FAERS Safety Report 9780171 (Version 3)
Quarter: 2014Q1

REPORT INFORMATION
  Report Type: Spontaneous
  Country: FR (occurrence: FR)
  Receive Date: 20131223
  Receipt Date: 20140106
  Transmission Date: 20141002
  Serious: Yes (Disabling, Other)
  Sender: FDA-Public Use
  Company Number: PHHY2013FR143252

PATIENT
  Sex: Female

DRUGS (5)
  1. LOXEN [Suspect]
     Indication: HYPERTENSION
     Dosage: 30 MG, QD
     Route: 048
     Dates: start: 20110511
  2. VALSARTAN [Suspect]
     Dosage: 80 MG, UNK
     Dates: end: 20131206
  3. TAREG [Concomitant]
     Dosage: 80 MG, UNK
     Dates: start: 20110511
  4. SPIRONOLACTONE [Concomitant]
     Dosage: 12.5 MG, UNK
  5. PRAVASTATINE [Concomitant]
     Dosage: 10 MG, UNK

REACTIONS (4)
  - Osteoarthritis [Unknown]
  - Back pain [Recovered/Resolved]
  - Hypokinesia [Unknown]
  - Arthritis [Not Recovered/Not Resolved]
